FAERS Safety Report 8332772-8 (Version None)
Quarter: 2012Q2

REPORT INFORMATION
  Report Type: 
  Country: None (occurrence: None)
  Receive Date: 20120503
  Receipt Date: 20120425
  Transmission Date: 20120825
  Serious: Yes (Other)
  Sender: FDA-Public Use
  Company Number: US-US-EMD SERONO, INC.-7121110

PATIENT
  Sex: Female

DRUGS (2)
  1. STEROIDS [Suspect]
     Indication: PRODUCT USED FOR UNKNOWN INDICATION
  2. REBIF [Suspect]
     Indication: PRODUCT USED FOR UNKNOWN INDICATION
     Route: 058
     Dates: start: 20110415

REACTIONS (8)
  - ARTHROPATHY [None]
  - HIP ARTHROPLASTY [None]
  - DIZZINESS [None]
  - MUSCLE SPASMS [None]
  - DRY MOUTH [None]
  - PALPITATIONS [None]
  - NAUSEA [None]
  - BALANCE DISORDER [None]
